FAERS Safety Report 7531469-1 (Version None)
Quarter: 2011Q2

REPORT INFORMATION
  Report Type: 
  Country: None (occurrence: None)
  Receive Date: 20110608
  Receipt Date: 20110531
  Transmission Date: 20111010
  Serious: Yes (Other)
  Sender: FDA-Public Use
  Company Number: DE-BRISTOL-MYERS SQUIBB COMPANY-15792666

PATIENT
  Age: 3 Year

DRUGS (6)
  1. ETOPOSIDE [Suspect]
     Indication: MEDULLOBLASTOMA
  2. LOMUSTINE [Suspect]
     Indication: MEDULLOBLASTOMA
  3. CYCLOPHOSPHAMIDE [Suspect]
     Indication: MEDULLOBLASTOMA
  4. CARBOPLATIN [Suspect]
     Indication: MEDULLOBLASTOMA
     Dosage: CUMULATIVE DOSE
  5. METHOTREXATE [Suspect]
     Indication: MEDULLOBLASTOMA
  6. VINCRISTINE [Suspect]
     Indication: MEDULLOBLASTOMA

REACTIONS (1)
  - DEAFNESS [None]
